FAERS Safety Report 9003970 (Version 2)
Quarter: 2013Q1

REPORT INFORMATION
  Report Type: Spontaneous
  Country: US (occurrence: US)
  Receive Date: 20130109
  Receipt Date: 20130123
  Transmission Date: 20140127
  Serious: No
  Sender: FDA-Public Use
  Company Number: US-009507513-1301USA000454

PATIENT
  Sex: Female

DRUGS (2)
  1. PEGINTRON [Suspect]
     Indication: HEPATITIS C
     Dosage: 80 MICROGRAM, QW
  2. RIBAVIRIN [Suspect]

REACTIONS (2)
  - Anaemia [Not Recovered/Not Resolved]
  - Product quality issue [Unknown]
